FAERS Safety Report 7201602-X (Version None)
Quarter: 2010Q4

REPORT INFORMATION
  Report Type: 
  Country: None (occurrence: None)
  Receive Date: 20101214
  Receipt Date: 20101129
  Transmission Date: 20110411
  Serious: Yes (Death)
  Sender: FDA-Public Use
  Company Number: CIO10016950

PATIENT
  Age: 4 Month
  Sex: Female

DRUGS (3)
  1. DEXTROMETHORPHAN (DEXTROMETHORPHAN HYDROBROMIDE UNK) UNKNOWN [Suspect]
     Dosage: ORAL
     Route: 048
  2. CHLORPHENIRAMINE MALEATE [Suspect]
     Dosage: ORAL
     Route: 048
  3. DOXYLAMINE SUCCINATE [Suspect]
     Dosage: ORAL
     Route: 048

REACTIONS (1)
  - DEATH [None]
